FAERS Safety Report 12615914 (Version 1)
Quarter: 2016Q3

REPORT INFORMATION
  Report Type: Report from Study
  Country: CN (occurrence: CN)
  Receive Date: 20160802
  Receipt Date: 20160802
  Transmission Date: 20161109
  Serious: Yes (Hospitalization)
  Sender: FDA-Public Use
  Company Number: CN-BAXTER-2016BAX038655

PATIENT
  Age: 59 Year
  Sex: Female

DRUGS (3)
  1. PERITONEAL DIALYSIS SOLUTION (LACTATE- G 1.5%) [Suspect]
     Active Substance: CALCIUM CHLORIDE\DEXTROSE\MAGNESIUM CHLORIDE\SODIUM CHLORIDE\SODIUM LACTATE
     Dosage: 5 BAGS
     Route: 033
  2. PERITONEAL DIALYSIS SOLUTION (LACTATE- G 1.5%) [Suspect]
     Active Substance: CALCIUM CHLORIDE\DEXTROSE\MAGNESIUM CHLORIDE\SODIUM CHLORIDE\SODIUM LACTATE
     Indication: END STAGE RENAL DISEASE
     Route: 033
     Dates: start: 20150113
  3. PERITONEAL DIALYSIS SOLUTION (LACTATE- G2.5%) [Suspect]
     Active Substance: CALCIUM CHLORIDE\DEXTROSE\MAGNESIUM CHLORIDE\SODIUM CHLORIDE\SODIUM LACTATE
     Indication: END STAGE RENAL DISEASE
     Route: 033

REACTIONS (5)
  - Vomiting [Recovered/Resolved]
  - Pain in extremity [Recovering/Resolving]
  - Peritoneal cloudy effluent [Recovered/Resolved]
  - Infection [Not Recovered/Not Resolved]
  - Abdominal pain [Recovered/Resolved]

NARRATIVE: CASE EVENT DATE: 20160712
